FAERS Safety Report 5070133-8 (Version None)
Quarter: 2006Q3

REPORT INFORMATION
  Report Type: 
  Country: None (occurrence: None)
  Receive Date: 20060731
  Receipt Date: 20060718
  Transmission Date: 20061208
  Serious: Yes (Death, Hospitalization)
  Sender: FDA-Public Use
  Company Number: 082-20785-06070555

PATIENT
  Age: 45 Year
  Sex: Female

DRUGS (2)
  1. THALIDOMIDE - PHARMION (THALIDOMIDE) (50 MILLIGRAM, CAPSULES) [Suspect]
     Indication: MULTIPLE MYELOMA
     Dosage: 200 MG, 1 IN 1 D, ORAL
     Route: 048
     Dates: start: 20051211, end: 20060701
  2. DEXAMETHASONE TAB [Concomitant]

REACTIONS (4)
  - DISEASE PROGRESSION [None]
  - EPISTAXIS [None]
  - LEUKAEMIA PLASMACYTIC [None]
  - THROMBOCYTOPENIA [None]
